FAERS Safety Report 21889756 (Version 3)
Quarter: 2023Q1

REPORT INFORMATION
  Report Type: Spontaneous
  Country: AT (occurrence: AT)
  Receive Date: 20230120
  Receipt Date: 20230211
  Transmission Date: 20230418
  Serious: Yes (Other)
  Sender: FDA-Public Use
  Company Number: AT-ASTELLAS-2023EU000074

PATIENT
  Age: 77 Year
  Sex: Male

DRUGS (15)
  1. BENDAMUSTINE HYDROCHLORIDE [Suspect]
     Active Substance: BENDAMUSTINE HYDROCHLORIDE
     Indication: Mantle cell lymphoma
     Route: 042
  2. CYCLOPHOSPHAMIDE [Suspect]
     Active Substance: CYCLOPHOSPHAMIDE
     Indication: Mantle cell lymphoma
     Dosage: (THIRD LINE SYSTEMIC TREATMENT, IBRUTINIB)CHOP
     Route: 065
     Dates: start: 201804, end: 201808
  3. MITOXANTRONE [Suspect]
     Active Substance: MITOXANTRONE HYDROCHLORIDE
     Indication: Mantle cell lymphoma
     Dosage: .(FIFTH LINE SYSTEMIC TREATMENT, R-CNOP)
     Route: 065
     Dates: start: 202205, end: 202210
  4. IBRUTINIB [Suspect]
     Active Substance: IBRUTINIB
     Indication: Product used for unknown indication
     Dosage: (THIRD LINE SYSTEMIC TREATMENT)
     Route: 065
     Dates: start: 202011, end: 202101
  5. PREDNISONE [Suspect]
     Active Substance: PREDNISONE
     Indication: Mantle cell lymphoma
     Dosage: (THIRD LINE SYSTEMIC TREATMENT, IBRUTINIB)CHOP
     Route: 065
     Dates: start: 201804, end: 201808
  6. VINCRISTINE [Suspect]
     Active Substance: VINCRISTINE
     Indication: Mantle cell lymphoma
     Dosage: (THIRD LINE SYSTEMIC TREATMENT, IBRUTINIB)CHOP
     Route: 065
     Dates: start: 201804, end: 201808
  7. REVLIMID [Suspect]
     Active Substance: LENALIDOMIDE
     Indication: Mantle cell lymphoma
     Route: 065
     Dates: start: 202102, end: 202104
  8. RITUXIMAB [Suspect]
     Active Substance: RITUXIMAB
     Indication: Mantle cell lymphoma
     Route: 065
     Dates: start: 201608, end: 201608
  9. RITUXIMAB [Suspect]
     Active Substance: RITUXIMAB
     Dosage: (SECOND LINE SYSTEMIC TREATMENT ANTI CD20 (R-CHOP))
     Route: 065
     Dates: start: 201804, end: 201808
  10. RITUXIMAB [Suspect]
     Active Substance: RITUXIMAB
     Dosage: (FIFTH LINE SYSTEMIC TREATMENT, R-CNOP)
     Route: 065
     Dates: start: 202205, end: 202210
  11. DIETARY SUPPLEMENT [Suspect]
     Active Substance: DIETARY SUPPLEMENT
     Indication: Mantle cell lymphoma
     Dosage: (SECOND LINE SYSTEMIC TREATMENT ANTI CD20 (R-CHOP))
     Route: 065
     Dates: start: 201804, end: 201808
  12. DOXORUBICIN HYDROCHLORIDE [Suspect]
     Active Substance: DOXORUBICIN HYDROCHLORIDE
     Indication: Mantle cell lymphoma
     Dosage: (THIRD LINE SYSTEMIC TREATMENT, IBRUTINIB)CHOP
     Route: 065
     Dates: start: 201804, end: 201808
  13. CYCLOPHOSPHAMIDE [Suspect]
     Active Substance: CYCLOPHOSPHAMIDE
     Indication: Mantle cell lymphoma
     Dosage: (FIFTH LINE SYSTEMIC TREATMENT, R-CNOP)
     Route: 065
     Dates: start: 202205, end: 202210
  14. VINCRISTINE [Suspect]
     Active Substance: VINCRISTINE
     Indication: Mantle cell lymphoma
     Dosage: (FIFTH LINE SYSTEMIC TREATMENT, R-CNOP)
     Route: 065
     Dates: start: 202205, end: 202210
  15. PREDNISONE [Suspect]
     Active Substance: PREDNISONE
     Indication: Mantle cell lymphoma
     Dosage: (FIFTH LINE SYSTEMIC TREATMENT, R-CNOP)
     Route: 065
     Dates: start: 202205, end: 202210

REACTIONS (2)
  - Malignant neoplasm progression [Unknown]
  - Off label use [Unknown]
